FAERS Safety Report 4428366-7 (Version None)
Quarter: 2004Q3

REPORT INFORMATION
  Report Type: 
  Country: None (occurrence: None)
  Receive Date: 20040813
  Receipt Date: 20040803
  Transmission Date: 20050211
  Serious: No
  Sender: FDA-Public Use
  Company Number: RS004613-J

PATIENT
  Age: 63 Year
  Sex: Male

DRUGS (8)
  1. PARIET (RABEPRAZOLE) (RABEPRAZOLE SODIUM) [Suspect]
     Indication: ANASTOMOTIC ULCER
     Dosage: 20 MG, 2 IN 1 D, ORAL
     Route: 048
     Dates: start: 20040507, end: 20040519
  2. PARIET (RABEPRAZOLE) (RABEPRAZOLE SODIUM) [Suspect]
     Indication: GASTRIC ULCER
     Dosage: 20 MG, 2 IN 1 D, ORAL
     Route: 048
     Dates: start: 20040507, end: 20040519
  3. FERROMIA (FERROUS CITRATE) [Suspect]
     Indication: ANAEMIA
     Dosage: 100 MG, 2 IN 1 D, ORAL
     Route: 048
     Dates: start: 20040507, end: 20040519
  4. OMEPRAZOLE [Suspect]
     Indication: MEDICAL DIET
     Dosage: 2 DOSAG FORMS, 2 IN 1 D
     Dates: start: 20040503, end: 20040508
  5. AMINOFLUID (AMINOFLUID) [Concomitant]
  6. ADONA (CARBAZOCHROME SODIUM SULFONATE) [Concomitant]
  7. TRANSAMIN (TRANEXAMIC ACID) [Concomitant]
  8. FESIN (SACCHARATED IRON OXIDE) [Concomitant]

REACTIONS (7)
  - CHROMATURIA [None]
  - COOMBS TEST NEGATIVE [None]
  - DYSPNOEA EXERTIONAL [None]
  - HAEMOGLOBIN DECREASED [None]
  - HAEMOLYSIS [None]
  - RETICULOCYTE COUNT INCREASED [None]
  - URINARY CASTS [None]
